FAERS Safety Report 10903782 (Version 1)
Quarter: 2015Q1

REPORT INFORMATION
  Report Type: Spontaneous
  Country: US (occurrence: None)
  Receive Date: 20150304
  Receipt Date: 20150304
  Transmission Date: 20150721
  Serious: Yes (Life-Threatening, Hospitalization)
  Sender: FDA-Public Use
  Company Number: None

PATIENT
  Age: 10 Year
  Sex: Female
  Weight: 14.9 kg

DRUGS (1)
  1. VENOFER [Suspect]
     Active Substance: IRON SUCROSE
     Indication: ANAEMIA
     Dosage: OVER ABOUT 2 HOURS, 375MG, ONCE, INTRAVENOUS
     Route: 042

REACTIONS (8)
  - Peripheral swelling [None]
  - Infusion related reaction [None]
  - Pulse abnormal [None]
  - Moaning [None]
  - Rash [None]
  - Pallor [None]
  - Cyanosis [None]
  - Hypoperfusion [None]

NARRATIVE: CASE EVENT DATE: 20140909
